FAERS Safety Report 5761121-4 (Version None)
Quarter: 2008Q2

REPORT INFORMATION
  Report Type: 
  Country: None (occurrence: None)
  Receive Date: 20080606
  Receipt Date: 20080529
  Transmission Date: 20081010
  Serious: Yes (Life-Threatening, Other)
  Sender: FDA-Public Use
  Company Number: US-BAYER-200812076BCC

PATIENT
  Age: 65 Year
  Sex: Female

DRUGS (3)
  1. ALEVE (CAPLET) [Suspect]
     Indication: BACK PAIN
     Route: 048
     Dates: start: 20080524
  2. UNKNOWN DIABETIC MEDICATION [Concomitant]
  3. UNKNOWN MUSCLE RELAXERS [Concomitant]

REACTIONS (9)
  - ASTHENIA [None]
  - ATRIAL FIBRILLATION [None]
  - DYSPNOEA [None]
  - EYE SWELLING [None]
  - HYPERSENSITIVITY [None]
  - LIP SWELLING [None]
  - PRURITUS [None]
  - PRURITUS GENERALISED [None]
  - URTICARIA [None]
